FAERS Safety Report 8576580-1 (Version None)
Quarter: 2012Q3

REPORT INFORMATION
  Report Type: 
  Country: None (occurrence: None)
  Receive Date: 20120807
  Receipt Date: 20120723
  Transmission Date: 20120928
  Serious: Yes (Other)
  Sender: FDA-Public Use
  Company Number: US-WATSON-2012-11995

PATIENT
  Sex: Male
  Weight: 77 kg

DRUGS (3)
  1. GELNIQUE [Suspect]
     Indication: URINARY INCONTINENCE
  2. GELNIQUE [Suspect]
     Indication: STRESS URINARY INCONTINENCE
     Dosage: 10% GEL PACKET, 1 PACKET EVERYDAY
     Route: 061
     Dates: start: 20120531, end: 20120705
  3. TOVIAZ [Suspect]
     Indication: URINARY INCONTINENCE
     Dosage: UNK
     Route: 065
     Dates: start: 20120614, end: 20120628

REACTIONS (5)
  - TREMOR [None]
  - PALLOR [None]
  - DYSKINESIA [None]
  - ASTHENIA [None]
  - EYELID FUNCTION DISORDER [None]
